FAERS Safety Report 15246581 (Version 1)
Quarter: 2018Q3

REPORT INFORMATION
  Report Type: Spontaneous
  Country: US (occurrence: US)
  Receive Date: 20180806
  Receipt Date: 20180806
  Transmission Date: 20181010
  Serious: Yes (Other)
  Sender: FDA-Public Use
  Company Number: US-PRINSTON PHARMACEUTICAL INC.-2018PRN00539

PATIENT
  Sex: Female
  Weight: 89.57 kg

DRUGS (11)
  1. VALSARTAN. [Suspect]
     Active Substance: VALSARTAN
     Indication: BLOOD PRESSURE ABNORMAL
     Dosage: 80 MG, 1X/DAY
     Route: 048
  2. FLEXERIL [Concomitant]
     Active Substance: CYCLOBENZAPRINE HYDROCHLORIDE
  3. VITAMIN B12 [Concomitant]
     Active Substance: CYANOCOBALAMIN
  4. VITAMIN C [Concomitant]
     Active Substance: ASCORBIC ACID
  5. NORVASC [Concomitant]
     Active Substance: AMLODIPINE BESYLATE
  6. XANAX [Concomitant]
     Active Substance: ALPRAZOLAM
  7. PLAVIX [Concomitant]
     Active Substance: CLOPIDOGREL BISULFATE
  8. HCTZ [Concomitant]
     Active Substance: HYDROCHLOROTHIAZIDE
  9. FOLIC ACID. [Concomitant]
     Active Substance: FOLIC ACID
  10. PRAVASTATIN. [Concomitant]
     Active Substance: PRAVASTATIN
  11. TOPROL XL [Concomitant]
     Active Substance: METOPROLOL SUCCINATE

REACTIONS (4)
  - Cerebrovascular accident [Unknown]
  - Neoplasm malignant [Recovered/Resolved]
  - Hysterectomy [Recovered/Resolved]
  - Fistula [Recovered/Resolved]

NARRATIVE: CASE EVENT DATE: 2017
